FAERS Safety Report 6542751-9 (Version None)
Quarter: 2010Q1

REPORT INFORMATION
  Report Type: 
  Country: None (occurrence: None)
  Receive Date: 20100119
  Receipt Date: 20100113
  Transmission Date: 20100710
  Serious: Yes (Other)
  Sender: FDA-Public Use
  Company Number: US-BAXTER-2010BH000980

PATIENT
  Sex: Female

DRUGS (1)
  1. HEPARIN SODIUM INJECTION [Suspect]
     Indication: DRUG USE FOR UNKNOWN INDICATION
     Route: 065
     Dates: start: 20080501

REACTIONS (10)
  - ASTHENIA [None]
  - CARDIAC DISORDER [None]
  - CARDIOVASCULAR INSUFFICIENCY [None]
  - CHILLS [None]
  - COMA [None]
  - HEADACHE [None]
  - ORGAN FAILURE [None]
  - PYREXIA [None]
  - SYNCOPE [None]
  - WHITE CLOT SYNDROME [None]
